FAERS Safety Report 10233871 (Version 1)
Quarter: 2014Q2

REPORT INFORMATION
  Report Type: Spontaneous
  Country: US (occurrence: US)
  Receive Date: 20140612
  Receipt Date: 20140612
  Transmission Date: 20141212
  Serious: Yes (Other)
  Sender: FDA-Public Use
  Company Number: US-BAYER-2014-082372

PATIENT
  Sex: Female

DRUGS (2)
  1. GADAVIST [Suspect]
     Indication: NUCLEAR MAGNETIC RESONANCE IMAGING BREAST
     Dosage: 10 ML, ONCE
  2. GADAVIST [Suspect]
     Indication: BREAST CANCER

REACTIONS (3)
  - Hypertension [None]
  - Orbital oedema [None]
  - Urticaria [None]
